FAERS Safety Report 6569508-7 (Version None)
Quarter: 2010Q1

REPORT INFORMATION
  Report Type: 
  Country: None (occurrence: None)
  Receive Date: 20100204
  Receipt Date: 20100126
  Transmission Date: 20100710
  Serious: Yes (Hospitalization)
  Sender: FDA-Public Use
  Company Number: US-ELI_LILLY_AND_COMPANY-US200912006214

PATIENT
  Sex: Female

DRUGS (7)
  1. FORTEO [Suspect]
     Indication: OSTEOPOROSIS
     Dosage: 20 UG, DAILY (1/D)
     Dates: start: 20090501
  2. VITAMIN D [Concomitant]
  3. CALCIUM [Concomitant]
  4. CRESTOR [Concomitant]
  5. SYNTHROID [Concomitant]
  6. OMEPRAZOLE [Concomitant]
  7. CELEBREX [Concomitant]

REACTIONS (3)
  - BACK DISORDER [None]
  - BACK PAIN [None]
  - SPINAL FRACTURE [None]
